FAERS Safety Report 5297813-3 (Version None)
Quarter: 2007Q2

REPORT INFORMATION
  Report Type: 
  Country: None (occurrence: None)
  Receive Date: 20070413
  Receipt Date: 20070413
  Transmission Date: 20071010
  Serious: Yes (Other)
  Sender: FDA-Public Use
  Company Number: None

PATIENT
  Age: 55 Year
  Sex: Female
  Weight: 100.8 kg

DRUGS (2)
  1. SUTENT [Suspect]
     Indication: METASTATIC RENAL CELL CARCINOMA
     Dosage: 50MG Q DAY PO
     Route: 048
     Dates: start: 20070201, end: 20070302
  2. SUTENT [Suspect]
     Indication: METASTATIC RENAL CELL CARCINOMA
     Dosage: 50MG Q DAY PO
     Route: 048
     Dates: start: 20070319, end: 20070412

REACTIONS (2)
  - EPISTAXIS [None]
  - SUBDURAL HAEMORRHAGE [None]
